APPROVED DRUG PRODUCT: XYLOSE
Active Ingredient: XYLOSE
Strength: 25GM/BOT
Dosage Form/Route: POWDER;ORAL
Application: N018856 | Product #001
Applicant: LYNE LABORATORIES INC
Approved: Mar 26, 1987 | RLD: No | RS: No | Type: DISCN